FAERS Safety Report 14230626 (Version 6)
Quarter: 2019Q2

REPORT INFORMATION
  Report Type: Spontaneous
  Country: US (occurrence: US)
  Receive Date: 20171128
  Receipt Date: 20190411
  Transmission Date: 20190711
  Serious: Yes (Other)
  Sender: FDA-Public Use
  Company Number: US-PFIZER INC-2017506993

PATIENT
  Age: 67 Year
  Sex: Male

DRUGS (5)
  1. PACLITAXEL. [Suspect]
     Active Substance: PACLITAXEL
     Indication: TRANSITIONAL CELL CARCINOMA
     Dosage: UNK UNK, 2X/WEEK (5 CYCLES WEEKLY)
  2. CISPLATIN. [Concomitant]
     Active Substance: CISPLATIN
     Indication: TRANSITIONAL CELL CARCINOMA
     Dosage: UNK, CYCLIC (2 CYCLES)
  3. GEMCITABINE HYDROCHLORIDE. [Suspect]
     Active Substance: GEMCITABINE HYDROCHLORIDE
     Dosage: UNK UNK, CYCLIC (1 CYCLES)
  4. CISPLATIN. [Concomitant]
     Active Substance: CISPLATIN
     Dosage: UNK, CYCLIC (1 CYCLES)
  5. GEMCITABINE HYDROCHLORIDE. [Suspect]
     Active Substance: GEMCITABINE HYDROCHLORIDE
     Indication: TRANSITIONAL CELL CARCINOMA
     Dosage: UNK, CYCLIC (2 CYCLES)

REACTIONS (2)
  - Haemoptysis [Recovered/Resolved]
  - Organising pneumonia [Recovered/Resolved]
